FAERS Safety Report 9914571 (Version 2)
Quarter: 2014Q1

REPORT INFORMATION
  Report Type: Spontaneous
  Country: US (occurrence: US)
  Receive Date: 20140220
  Receipt Date: 20140319
  Transmission Date: 20141002
  Serious: Yes (Death)
  Sender: FDA-Public Use
  Company Number: US-009507513-1402USA008670

PATIENT
  Sex: Male
  Weight: 61.22 kg

DRUGS (3)
  1. CLARITIN-D-12 [Suspect]
     Indication: RHINORRHOEA
     Dosage: 5 MG, ONCE
     Route: 048
     Dates: start: 20140212
  2. LOSARTAN POTASSIUM [Concomitant]
     Indication: PRODUCT USED FOR UNKNOWN INDICATION
     Dosage: UNK, UNKNOWN
     Route: 048
  3. FLOMAX (TAMSULOSIN HYDROCHLORIDE) [Concomitant]
     Indication: PRODUCT USED FOR UNKNOWN INDICATION
     Dosage: UNK, UNKNOWN

REACTIONS (1)
  - Death [Fatal]
